FAERS Safety Report 12676743 (Version 2)
Quarter: 2016Q3

REPORT INFORMATION
  Report Type: Report from Study
  Country: KR (occurrence: KR)
  Receive Date: 20160823
  Receipt Date: 20160907
  Transmission Date: 20161109
  Serious: Yes (Hospitalization)
  Sender: FDA-Public Use
  Company Number: KR-NOVOPROD-506088

PATIENT
  Age: 65 Year
  Sex: Female

DRUGS (1)
  1. TRESIBA [Suspect]
     Active Substance: INSULIN DEGLUDEC
     Indication: DIABETES MELLITUS
     Dosage: 10 - 12 UNITS PER A DAY
     Route: 058
     Dates: start: 20160715, end: 20160825

REACTIONS (1)
  - Diabetes mellitus management [Recovered/Resolved]
